FAERS Safety Report 9515793 (Version 1)
Quarter: 2013Q1

REPORT INFORMATION
  Report Type: Spontaneous
  Country: US (occurrence: None)
  Receive Date: 20130305
  Receipt Date: 20130305
  Transmission Date: 20140127
  Serious: Yes (Other)
  Sender: FDA-Public Use
  Company Number: 163-21880-12102668

PATIENT
  Age: 71 Year
  Sex: Male

DRUGS (10)
  1. REVLIMID (LENALIDOMIDE) (25 MILLIGRAM, CAPSULES) [Suspect]
     Indication: PLASMA CELL MYELOMA
     Route: 048
     Dates: start: 201001, end: 2010
  2. LORCET PLUS (VICODIN) (UNKNOWN) [Concomitant]
  3. B-12 (CYANOCOBALAMIN) (UNKNOWN) [Concomitant]
  4. CYMBALTA (DULOXETINE HYDROCHLORIDE) (UNKNOWN) [Concomitant]
  5. KLONOPIN WAFERS (CLONAZEPAM) (UNKNOWN) [Concomitant]
  6. VITAMIN B6 (PYROXINE HYDROCHLORIDE) (UNKNOWN) [Concomitant]
  7. ASPIRIN (ACETYLSALICYLIC ACID) (ENTERIC-COATED TABLET) [Concomitant]
  8. COLACE (DOCUSATE SODIUM) (UNKNOWN) [Concomitant]
  9. DEXAMETHASONE (DEXAMETHASONE) (UNKNOWN) [Concomitant]
  10. HCTZ (HYDROCHLOROTHIAZIDE) (UNKNOWN) [Concomitant]

REACTIONS (1)
  - Asthenia [None]
